FAERS Safety Report 4501649-8 (Version None)
Quarter: 2004Q4

REPORT INFORMATION
  Report Type: 
  Country: None (occurrence: None)
  Receive Date: 20041109
  Receipt Date: 20041025
  Transmission Date: 20050328
  Serious: Yes (Hospitalization)
  Sender: FDA-Public Use
  Company Number: 04H-083-0278844-00

PATIENT
  Age: 53 Year
  Sex: Female
  Weight: 67 kg

DRUGS (3)
  1. VANCOMYCIN HYDROCHLORIDE [Suspect]
     Dates: start: 20040721, end: 20040101
  2. PREDNISONE [Suspect]
     Indication: LIVER TRANSPLANT
     Dates: start: 20040704
  3. CYCLOSPORINE [Concomitant]

REACTIONS (4)
  - NEUROTOXICITY [None]
  - RENAL FAILURE [None]
  - SEPSIS [None]
  - STAPHYLOCOCCAL INFECTION [None]
